FAERS Safety Report 5098129-0 (Version None)
Quarter: 2006Q3

REPORT INFORMATION
  Report Type: 
  Country: None (occurrence: None)
  Receive Date: 20060906
  Receipt Date: 20060420
  Transmission Date: 20061208
  Serious: No
  Sender: FDA-Public Use
  Company Number: US-GLAXOSMITHKLINE-A0602665A

PATIENT
  Age: 55 Year
  Sex: Female

DRUGS (5)
  1. REQUIP [Suspect]
     Indication: RESTLESS LEGS SYNDROME
     Dosage: 1MG AS REQUIRED
     Route: 048
     Dates: start: 20060215
  2. LEXAPRO [Concomitant]
  3. LIPITOR [Concomitant]
  4. RANITIDINE [Concomitant]
  5. ESTROGENS SOL/INJ [Concomitant]

REACTIONS (2)
  - ILL-DEFINED DISORDER [None]
  - NAUSEA [None]
